FAERS Safety Report 18963465 (Version 1)
Quarter: 2021Q1

REPORT INFORMATION
  Report Type: Spontaneous
  Country: US (occurrence: US)
  Receive Date: 20210303
  Receipt Date: 20210303
  Transmission Date: 20210420
  Serious: Yes (Other)
  Sender: FDA-Public Use
  Company Number: US-MYLANLABS-2021M1013049

PATIENT
  Age: 2 Year
  Sex: Male

DRUGS (11)
  1. PHENOBARBITAL. [Suspect]
     Active Substance: PHENOBARBITAL
     Indication: MYOCLONIC EPILEPSY
     Route: 065
  2. PHENOBARBITAL. [Suspect]
     Active Substance: PHENOBARBITAL
     Indication: CLONIC CONVULSION
  3. CANNABIDIOL [Suspect]
     Active Substance: CANNABIDIOL
     Indication: CLONIC CONVULSION
  4. GABAPENTIN. [Suspect]
     Active Substance: GABAPENTIN
     Indication: CLONIC CONVULSION
  5. MEMANTINE. [Suspect]
     Active Substance: MEMANTINE
     Indication: EPILEPTIC ENCEPHALOPATHY
     Dosage: 1 MILLIGRAM/KILOGRAM, QD DOSE WAS INCREASED TO 20MG/DAY
     Route: 065
  6. MEMANTINE. [Suspect]
     Active Substance: MEMANTINE
     Dosage: 20 MILLIGRAM, QD ONGOING AT THE TIME OF LAST FOLLOW UP EXAMINATION
     Route: 065
  7. CYPROHEPTADINE. [Suspect]
     Active Substance: CYPROHEPTADINE
     Indication: MYOCLONIC EPILEPSY
     Route: 065
  8. GABAPENTIN. [Suspect]
     Active Substance: GABAPENTIN
     Indication: MYOCLONIC EPILEPSY
     Route: 065
  9. TOPIRAMATE. [Suspect]
     Active Substance: TOPIRAMATE
     Indication: MYOCLONIC EPILEPSY
     Route: 065
  10. TOPIRAMATE. [Suspect]
     Active Substance: TOPIRAMATE
     Indication: CLONIC CONVULSION
  11. CANNABIDIOL [Suspect]
     Active Substance: CANNABIDIOL
     Indication: MYOCLONIC EPILEPSY
     Route: 065

REACTIONS (2)
  - Treatment failure [Unknown]
  - Off label use [Unknown]
